FAERS Safety Report 11217142 (Version 1)
Quarter: 2015Q2

REPORT INFORMATION
  Report Type: Spontaneous
  Country: FR (occurrence: FR)
  Receive Date: 20150624
  Receipt Date: 20150624
  Transmission Date: 20150821
  Serious: Yes (Life-Threatening)
  Sender: FDA-Public Use
  Company Number: FR-SA-2015SA088723

PATIENT
  Age: 96 Year
  Sex: Female

DRUGS (6)
  1. STILNOX [Suspect]
     Active Substance: ZOLPIDEM TARTRATE
     Dosage: FOR MONTHS.
     Route: 048
  2. DIFFU K [Suspect]
     Active Substance: POTASSIUM CHLORIDE
     Dosage: FOR MONTHS.
     Route: 048
  3. LASILIX [Suspect]
     Active Substance: FUROSEMIDE
     Dosage: FOR MONTHS.
     Route: 048
  4. KARDEGIC [Suspect]
     Active Substance: ASPIRIN LYSINE
     Dosage: FOR MONTHS.
     Route: 048
  5. CRESTOR [Suspect]
     Active Substance: ROSUVASTATIN CALCIUM
     Dosage: FOR MONTHS.
     Route: 048
  6. EFFERALGAN [Suspect]
     Active Substance: ACETAMINOPHEN
     Dosage: FOR MONTHS.
     Route: 048

REACTIONS (3)
  - Coma [Recovered/Resolved]
  - Miosis [Recovered/Resolved]
  - Bradypnoea [Recovered/Resolved]

NARRATIVE: CASE EVENT DATE: 20150520
